FAERS Safety Report 16544314 (Version 3)
Quarter: 2019Q3

REPORT INFORMATION
  Report Type: Spontaneous
  Country: US (occurrence: US)
  Receive Date: 20190709
  Receipt Date: 20190716
  Transmission Date: 20191004
  Serious: Yes (Death, Hospitalization)
  Sender: FDA-Public Use
  Company Number: US-PFIZER INC-2019290155

PATIENT
  Sex: Female

DRUGS (6)
  1. BENZATHINE BENZYLPENICILLIN [Suspect]
     Active Substance: PENICILLIN G BENZATHINE
     Indication: ENDOCARDITIS BACTERIAL
     Dosage: 1.2 MILLION IU, MONTHLY (INJECTIONS)
     Dates: start: 1955
  2. THIOMERIN SODIUM [Suspect]
     Active Substance: MERCAPTOMERIN SODIUM
     Indication: ANTIBIOTIC PROPHYLAXIS
     Dosage: 2 CC, UNK (IN SEPARATE INJECTIONS)
     Route: 030
     Dates: start: 19591103
  3. THIOMERIN SODIUM [Suspect]
     Active Substance: MERCAPTOMERIN SODIUM
     Indication: CARDIOVASCULAR EVENT PROPHYLAXIS
  4. BENZATHINE BENZYLPENICILLIN [Suspect]
     Active Substance: PENICILLIN G BENZATHINE
     Indication: ANTIBIOTIC PROPHYLAXIS
     Dosage: 1.2 MILLION IU, MONTHLY
  5. BENZATHINE BENZYLPENICILLIN [Suspect]
     Active Substance: PENICILLIN G BENZATHINE
     Dosage: 1.2 MILLION IU, UNK
     Dates: start: 19591103
  6. BENZATHINE BENZYLPENICILLIN [Suspect]
     Active Substance: PENICILLIN G BENZATHINE
     Indication: CARDIOVASCULAR EVENT PROPHYLAXIS
     Dosage: UNK
     Dates: start: 195011

REACTIONS (1)
  - Anaphylactic shock [Fatal]

NARRATIVE: CASE EVENT DATE: 195707
